FAERS Safety Report 4881346-X (Version None)
Quarter: 2006Q1

REPORT INFORMATION
  Report Type: 
  Country: None (occurrence: None)
  Receive Date: 20060111
  Receipt Date: 20060111
  Transmission Date: 20060701
  Serious: Yes (Hospitalization)
  Sender: FDA-Public Use
  Company Number: None

PATIENT
  Sex: Female
  Weight: 4.9896 kg

DRUGS (1)
  1. ZANTAC 150 [Suspect]
     Indication: GASTROOESOPHAGEAL REFLUX DISEASE
     Dosage: 0.4 ML BID PO
     Route: 048
     Dates: start: 20051101, end: 20060101

REACTIONS (5)
  - CONSTIPATION [None]
  - CRYING [None]
  - GASTROENTERITIS [None]
  - URINE OUTPUT DECREASED [None]
  - VOMITING [None]
